FAERS Safety Report 5251875-8 (Version None)
Quarter: 2007Q1

REPORT INFORMATION
  Report Type: 
  Country: None (occurrence: None)
  Receive Date: 20070228
  Receipt Date: 20070213
  Transmission Date: 20070707
  Serious: Yes (Other)
  Sender: FDA-Public Use
  Company Number: US-PFIZER INC-2006055556

PATIENT
  Sex: Female
  Weight: 108.4 kg

DRUGS (2)
  1. BEXTRA [Suspect]
     Indication: PAIN MANAGEMENT
     Route: 048
  2. BEXTRA [Suspect]
     Indication: MYALGIA

REACTIONS (4)
  - ACUTE CORONARY SYNDROME [None]
  - CEREBROVASCULAR ACCIDENT [None]
  - MYOCARDIAL INFARCTION [None]
  - THROMBOSIS [None]
